FAERS Safety Report 9233672 (Version 2)
Quarter: 2013Q2

REPORT INFORMATION
  Report Type: Spontaneous
  Country: US (occurrence: US)
  Receive Date: 20130416
  Receipt Date: 20130612
  Transmission Date: 20140414
  Serious: Yes (Hospitalization, Other)
  Sender: FDA-Public Use
  Company Number: US-ELI_LILLY_AND_COMPANY-US201303008300

PATIENT
  Sex: Female
  Weight: 48.53 kg

DRUGS (13)
  1. ALIMTA [Suspect]
     Indication: NON-SMALL CELL LUNG CANCER STAGE IV
     Dosage: 250 MG/M2, OTHER
     Route: 042
     Dates: start: 20120601, end: 20121204
  2. FOLIC ACID [Concomitant]
     Dosage: 1 MG, QD
     Route: 048
     Dates: start: 20120516
  3. VITAMIN B12 [Concomitant]
     Dosage: 1000 UG, UNK
     Route: 058
     Dates: start: 20120516
  4. DECADRON                           /00016001/ [Concomitant]
     Dosage: 2 MG, BID
     Dates: start: 20120503
  5. AVASTIN [Concomitant]
     Dosage: 5 MG/KG, OTHER
  6. TYLENOL                                 /SCH/ [Concomitant]
     Indication: PAIN
     Dosage: UNK, PRN
  7. ATIVAN [Concomitant]
     Dosage: 5 MG, PRN
  8. BENAZEPRIL [Concomitant]
     Dosage: 2 MG, QD
  9. COMPAZINE [Concomitant]
     Dosage: 10 MG, PRN
  10. CLARITIN [Concomitant]
     Dosage: UNK UNK, PRN
  11. FOSAMAX D [Concomitant]
  12. ACTONEL [Concomitant]
  13. ZOFRAN [Concomitant]
     Dosage: 8 MG, PRN

REACTIONS (2)
  - Abscess rupture [Recovered/Resolved]
  - Off label use [Unknown]
